FAERS Safety Report 4456108-8 (Version None)
Quarter: 2004Q3

REPORT INFORMATION
  Report Type: 
  Country: None (occurrence: None)
  Receive Date: 20040920
  Receipt Date: 20040909
  Transmission Date: 20050211
  Serious: Yes (Disabling)
  Sender: FDA-Public Use
  Company Number: CH-2004-031524

PATIENT
  Sex: 0

DRUGS (1)
  1. ULTRAVIST 300 [Suspect]
     Dosage: INTRAVENOUS
     Route: 042

REACTIONS (2)
  - DRUG CLEARANCE INCREASED [None]
  - HYPOTHYROIDISM [None]
